FAERS Safety Report 9366115 (Version 1)
Quarter: 2013Q2

REPORT INFORMATION
  Report Type: Spontaneous
  Country: ES (occurrence: ES)
  Receive Date: 20130625
  Receipt Date: 20130625
  Transmission Date: 20140414
  Serious: Yes (Hospitalization)
  Sender: FDA-Public Use
  Company Number: ES-PFIZER INC-2013185765

PATIENT
  Age: 74 Year
  Sex: Male

DRUGS (8)
  1. TAZOCEL [Suspect]
     Indication: CHRONIC OBSTRUCTIVE PULMONARY DISEASE
     Dosage: 4G/0.5G FOUR TIMES DAILY (16G/2G DAILY)
     Route: 042
     Dates: start: 20120924, end: 20121001
  2. TOBRAMYCIN SULFATE [Interacting]
     Indication: CHRONIC OBSTRUCTIVE PULMONARY DISEASE
     Dosage: 300 MG, 1X/DAY
     Route: 042
     Dates: start: 20120924, end: 20120927
  3. NORADRENALINE [Concomitant]
     Dosage: 50 MG, 1X/DAY
     Route: 042
     Dates: start: 20120924
  4. PROPOFOL [Concomitant]
     Indication: SEDATION
     Dosage: UNK
     Route: 042
     Dates: start: 20120924
  5. ACTOCORTINA [Concomitant]
     Dosage: 200 MG, 1X/DAY
     Route: 042
     Dates: start: 20120924, end: 20120924
  6. AUGMENTINE [Concomitant]
     Dosage: 1000 MG/200 MG THREE TIMES DAILY (3 G/600 MG DAILY)
     Route: 042
     Dates: start: 20120924
  7. FENTANEST [Concomitant]
     Indication: SEDATION
     Dosage: 5 DF, UNK
     Route: 042
     Dates: start: 20120924
  8. URBASON [Concomitant]
     Indication: CHRONIC OBSTRUCTIVE PULMONARY DISEASE
     Dosage: 60 MG, 3X/DAY
     Route: 042
     Dates: start: 20120924

REACTIONS (2)
  - Renal failure acute [Recovered/Resolved]
  - Drug interaction [Recovered/Resolved]
